FAERS Safety Report 12820176 (Version 2)
Quarter: 2017Q1

REPORT INFORMATION
  Report Type: Spontaneous
  Country: JP (occurrence: JP)
  Receive Date: 20161006
  Receipt Date: 20170316
  Transmission Date: 20170428
  Serious: Yes (Hospitalization)
  Sender: FDA-Public Use
  Company Number: PHJP2016JP014649

PATIENT
  Age: 32 Year
  Sex: Female

DRUGS (2)
  1. AFINITOR [Suspect]
     Active Substance: EVEROLIMUS
     Dosage: 5 MG, QD
     Route: 048
  2. AFINITOR [Suspect]
     Active Substance: EVEROLIMUS
     Indication: ANGIOMYOLIPOMA
     Dosage: 10 MG, QD
     Route: 048
     Dates: start: 201310

REACTIONS (4)
  - Normal newborn [Unknown]
  - Renal aneurysm [Recovered/Resolved]
  - Maternal exposure during pregnancy [Unknown]
  - Neoplasm progression [Recovering/Resolving]

NARRATIVE: CASE EVENT DATE: 201605
